FAERS Safety Report 7926211-6 (Version None)
Quarter: 2011Q4

REPORT INFORMATION
  Report Type: 
  Country: None (occurrence: None)
  Receive Date: 20111118
  Receipt Date: 20111109
  Transmission Date: 20120403
  Serious: Yes (Other)
  Sender: FDA-Public Use
  Company Number: AR-AMGEN-ARGSP2011052918

PATIENT
  Age: 58 Year
  Sex: Male
  Weight: 120 kg

DRUGS (5)
  1. METHOTREXATE [Concomitant]
     Dosage: UNK
  2. ATLANSIL                           /00133101/ [Concomitant]
     Dosage: UNK
  3. LOSACOR [Concomitant]
     Dosage: UNK
  4. T4 [Concomitant]
     Dosage: UNK
  5. ENBREL [Suspect]
     Indication: PSORIATIC ARTHROPATHY
     Dosage: 50 MG, WEEKLY
     Route: 058
     Dates: start: 20091106, end: 20110601

REACTIONS (1)
  - PSORIATIC ARTHROPATHY [None]
